FAERS Safety Report 6269769-8 (Version None)
Quarter: 2009Q3

REPORT INFORMATION
  Report Type: 
  Country: None (occurrence: None)
  Receive Date: 20090716
  Receipt Date: 20090706
  Transmission Date: 20100115
  Serious: Yes (Hospitalization)
  Sender: FDA-Public Use
  Company Number: AU-ASTRAZENECA-2009SE04350

PATIENT
  Age: 60 Year
  Sex: Male

DRUGS (7)
  1. PROPOFOL [Suspect]
     Dosage: 1 DOSE UNSPECIFIED 1 TIME
     Route: 042
     Dates: start: 20081021, end: 20081021
  2. FENTANYL-100 [Suspect]
     Dosage: 1 DOSE UNSPECIFIED 1 TIME
     Dates: start: 20081021, end: 20081021
  3. MORPHINE NOS [Suspect]
     Dosage: 1 DOSE UNSPECIFIED 1 TIME
     Dates: start: 20081021, end: 20081021
  4. CEFAZOLIN SODIUM [Suspect]
     Dosage: 1 DOSE UNSPECIFIED 1 TIME
     Dates: start: 20081021, end: 20081021
  5. MIDAZOLAM HCL [Suspect]
     Dosage: 1 DOSE UNSPECIFIED 1 TIME
     Dates: start: 20081021, end: 20081021
  6. OMEPRAZOLE [Concomitant]
  7. PARACETAMOL [Concomitant]

REACTIONS (1)
  - JAUNDICE CHOLESTATIC [None]
